FAERS Safety Report 6212118-1 (Version None)
Quarter: 2009Q2

REPORT INFORMATION
  Report Type: 
  Country: None (occurrence: None)
  Receive Date: 20090602
  Receipt Date: 20090522
  Transmission Date: 20091009
  Serious: Yes (Other)
  Sender: FDA-Public Use
  Company Number: PHHY2009GB15365

PATIENT
  Sex: Male

DRUGS (7)
  1. CLOZARIL [Suspect]
     Indication: SCHIZOPHRENIA
     Dosage: 225 MG DAILY
     Route: 048
     Dates: start: 20081210, end: 20090413
  2. STELAZINE [Concomitant]
     Dosage: 5 MG, BID
     Route: 048
  3. BENZODIAZEPINE DERIVATIVES [Concomitant]
  4. LITHIUM CARBONATE [Concomitant]
  5. TEMAZEPAM [Concomitant]
     Indication: INSOMNIA
     Dosage: 20 MG DAILY
     Route: 048
     Dates: start: 20090401
  6. DIAZEPAM [Concomitant]
     Indication: ANXIETY
     Dosage: 2MG, TID, PRN
     Dates: start: 20090401
  7. DIAZEPAM [Concomitant]
     Indication: AGITATION

REACTIONS (5)
  - AGRANULOCYTOSIS [None]
  - INSOMNIA [None]
  - NEUTROPENIA [None]
  - PSYCHOTIC DISORDER [None]
  - WHITE BLOOD CELL COUNT DECREASED [None]
